FAERS Safety Report 18955933 (Version 3)
Quarter: 2022Q3

REPORT INFORMATION
  Report Type: Spontaneous
  Country: ES (occurrence: ES)
  Receive Date: 20210302
  Receipt Date: 20220816
  Transmission Date: 20221027
  Serious: Yes (Other)
  Sender: FDA-Public Use
  Company Number: ES-SA-SAC20210201000942

PATIENT
  Age: 37 Year
  Sex: Female

DRUGS (1)
  1. DUPIXENT [Suspect]
     Active Substance: DUPILUMAB
     Indication: Dermatitis atopic
     Dosage: UNK
     Dates: start: 202010

REACTIONS (8)
  - Autoimmune hypothyroidism [Unknown]
  - Anti-thyroid antibody increased [Unknown]
  - Thyroxine decreased [Unknown]
  - Blood thyroid stimulating hormone increased [Unknown]
  - Punctate keratitis [Recovered/Resolved]
  - Pollakiuria [Recovering/Resolving]
  - Nocturia [Unknown]
  - Rosacea [Recovered/Resolved]

NARRATIVE: CASE EVENT DATE: 20210128
